FAERS Safety Report 6646217-7 (Version None)
Quarter: 2010Q1

REPORT INFORMATION
  Report Type: 
  Country: None (occurrence: None)
  Receive Date: 20100323
  Receipt Date: 20100309
  Transmission Date: 20100710
  Serious: Yes (Other)
  Sender: FDA-Public Use
  Company Number: SK-ROCHE-690025

PATIENT
  Sex: Male

DRUGS (11)
  1. VESANOID [Suspect]
     Dosage: FREQUENCY: 8 TBL A DAY
     Route: 065
     Dates: start: 20100217
  2. FLUCONAZOLUM [Concomitant]
     Dosage: DRUG REPORTED AS: MEDOFLUCON (FLUKONAZOLUM)
  3. ASCORUTIN [Concomitant]
  4. CETRIZINE [Concomitant]
     Dosage: DRUG REPORTED AS: ALERID (CETRIZINUM)
  5. PIPERACILLIN AND TAZOBACTAM [Concomitant]
     Dosage: DRUG REPORTED AS: TAZOCIN (PIPERACILLINUM)
  6. OFLOXACINUM [Concomitant]
     Dosage: DRUG REPORTED AS: UNIFLOX GTT (OFLOXACINUM)
  7. PINOSOL [Concomitant]
  8. PARALEN [Concomitant]
  9. TANTUM VERDE [Concomitant]
  10. DICYNONE [Concomitant]
  11. ACETYLCYSTEINE [Concomitant]

REACTIONS (6)
  - BLOOD CREATINE PHOSPHOKINASE INCREASED [None]
  - BLOOD CREATINE PHOSPHOKINASE MB INCREASED [None]
  - MYALGIA [None]
  - MYOGLOBINAEMIA [None]
  - RETINOIC ACID SYNDROME [None]
  - TROPONIN T INCREASED [None]
